FAERS Safety Report 9188341 (Version 2)
Quarter: 2013Q1

REPORT INFORMATION
  Report Type: Spontaneous
  Country: US (occurrence: US)
  Receive Date: 20130325
  Receipt Date: 20130327
  Transmission Date: 20140127
  Serious: Yes (Other)
  Sender: FDA-Public Use
  Company Number: US-ASTRAZENECA-2013SE18226

PATIENT
  Age: 22 Year
  Sex: Male

DRUGS (2)
  1. SEROQUEL XR [Suspect]
     Route: 048
     Dates: start: 2013, end: 201303
  2. SEROQUEL XR [Suspect]
     Route: 048

REACTIONS (4)
  - Haematemesis [Unknown]
  - Pyrexia [Unknown]
  - Vomiting [Unknown]
  - Drug dose omission [Unknown]
